FAERS Safety Report 16564794 (Version 1)
Quarter: 2019Q3

REPORT INFORMATION
  Report Type: Spontaneous
  Country: US (occurrence: US)
  Receive Date: 20190711
  Receipt Date: 20190711
  Transmission Date: 20191004
  Serious: Yes (Other)
  Sender: FDA-Public Use
  Company Number: None

PATIENT
  Age: 45 Year
  Sex: Female
  Weight: 108.9 kg

DRUGS (4)
  1. LEVOTHYROXINE. [Suspect]
     Active Substance: LEVOTHYROXINE
     Indication: HYPOTHYROIDISM
     Route: 048
     Dates: start: 20190622, end: 20190624
  2. DICLFENAC [Concomitant]
     Dates: start: 20190314
  3. CELEBREX [Concomitant]
     Active Substance: CELECOXIB
     Dates: start: 20190308
  4. PRALUENT [Concomitant]
     Active Substance: ALIROCUMAB
     Dates: start: 20190314

REACTIONS (9)
  - Product substitution issue [None]
  - Drug hypersensitivity [None]
  - Dyspnoea [None]
  - Malaise [None]
  - Anxiety [None]
  - Nausea [None]
  - Back pain [None]
  - Hypoaesthesia [None]
  - Swelling face [None]

NARRATIVE: CASE EVENT DATE: 20190624
